FAERS Safety Report 5341979-3 (Version None)
Quarter: 2007Q2

REPORT INFORMATION
  Report Type: 
  Country: None (occurrence: None)
  Receive Date: 20070411
  Receipt Date: 20070209
  Transmission Date: 20071010
  Serious: Yes (Other)
  Sender: FDA-Public Use
  Company Number: 2007012749

PATIENT
  Age: 21 Year
  Sex: Female
  Weight: 46.3 kg

DRUGS (2)
  1. DEPO-SUBQ PROVERA 104 [Suspect]
     Indication: CONTRACEPTION
     Dosage: SEE IMAGE
     Route: 058
     Dates: start: 20060701, end: 20060701
  2. DEPO-SUBQ PROVERA 104 [Suspect]
     Indication: CONTRACEPTION
     Dosage: SEE IMAGE
     Route: 058
     Dates: start: 20061228, end: 20061228

REACTIONS (1)
  - INJECTION SITE REACTION [None]
